FAERS Safety Report 4564305-6 (Version None)
Quarter: 2005Q1

REPORT INFORMATION
  Report Type: 
  Country: None (occurrence: None)
  Receive Date: 20050128
  Receipt Date: 20041222
  Transmission Date: 20050727
  Serious: Yes (Hospitalization, Disabling)
  Sender: FDA-Public Use
  Company Number: US-MERCK-0412USA02773

PATIENT
  Age: 77 Year
  Sex: Female

DRUGS (5)
  1. VIOXX [Suspect]
     Indication: ARTHRITIS
     Route: 048
     Dates: end: 20040101
  2. ZOCOR [Concomitant]
     Route: 065
  3. MECLIZINE [Concomitant]
     Route: 065
  4. PREMARIN [Concomitant]
     Route: 065
  5. [THERAPY UNSPECIFIED] [Concomitant]
     Route: 065

REACTIONS (12)
  - COLITIS [None]
  - COUGH [None]
  - DEHYDRATION [None]
  - DYSPNOEA [None]
  - HEADACHE [None]
  - LACRIMATION INCREASED [None]
  - SNEEZING [None]
  - SPINAL OSTEOARTHRITIS [None]
  - THYROID NEOPLASM [None]
  - TRANSIENT ISCHAEMIC ATTACK [None]
  - UPPER RESPIRATORY TRACT INFECTION [None]
  - VERTIGO [None]
